FAERS Safety Report 6076055-8 (Version None)
Quarter: 2009Q1

REPORT INFORMATION
  Report Type: 
  Country: None (occurrence: None)
  Receive Date: 20090212
  Receipt Date: 20090210
  Transmission Date: 20090719
  Serious: Yes (Death, Other)
  Sender: FDA-Public Use
  Company Number: US-ASTRAZENECA-2007UW09511

PATIENT
  Age: 10708 Day
  Sex: Female

DRUGS (3)
  1. SEROQUEL [Suspect]
     Indication: BIPOLAR DISORDER
     Route: 048
     Dates: start: 20021211, end: 20050823
  2. SEROQUEL [Suspect]
     Indication: SCHIZOPHRENIA
     Route: 048
     Dates: start: 20021211, end: 20050823
  3. RISPERDAL [Concomitant]
     Dates: start: 20020911, end: 20040123

REACTIONS (6)
  - DIABETIC KETOACIDOSIS [None]
  - MALNUTRITION [None]
  - MENINGITIS BACTERIAL [None]
  - OTITIS MEDIA [None]
  - PANCYTOPENIA [None]
  - TYPE 2 DIABETES MELLITUS [None]
